FAERS Safety Report 9242878 (Version 4)
Quarter: 2013Q3

REPORT INFORMATION
  Report Type: Report from Study
  Country: GB (occurrence: GB)
  Receive Date: 20130419
  Receipt Date: 20130819
  Transmission Date: 20140515
  Serious: Yes (Hospitalization, Other)
  Sender: FDA-Public Use
  Company Number: GB-B.I. PHARMACEUTICALS,INC./RIDGEFIELD-2013-UK-00883UK

PATIENT
  Age: 75 Year
  Sex: Female
  Weight: 76 kg

DRUGS (12)
  1. PRADAXA [Suspect]
     Indication: CEREBROVASCULAR ACCIDENT PROPHYLAXIS
     Dosage: 300 MG
     Route: 048
     Dates: start: 20120709, end: 20121003
  2. PRADAXA [Suspect]
     Indication: ATRIAL FIBRILLATION
     Dosage: 220 MG
     Route: 048
     Dates: start: 20121008
  3. SALBUTAMOL INHALER [Concomitant]
     Indication: ASTHMA
     Dosage: SPRAY
     Route: 055
  4. PROTELOS [Concomitant]
     Indication: PRODUCT USED FOR UNKNOWN INDICATION
     Dosage: 2 G
     Route: 048
  5. PARACETAMOL [Concomitant]
     Indication: PAIN
     Dosage: 4 G
     Route: 048
  6. CODEINE [Concomitant]
     Indication: PAIN
     Dosage: 60 MG
     Route: 048
  7. BISOPROLOL [Concomitant]
     Indication: HEART RATE
     Dosage: 5 MG
     Route: 048
  8. BENDROFLUMETHIAZIDE [Concomitant]
     Indication: BLOOD PRESSURE INCREASED
     Dosage: 2.5 MG
     Route: 048
  9. ATROVASTATIN [Concomitant]
     Indication: PRODUCT USED FOR UNKNOWN INDICATION
     Dosage: 10 MG
     Route: 048
  10. ADCAL D3 [Concomitant]
     Indication: BONE DISORDER
     Dosage: 1 ANZ
     Route: 048
  11. MEPRADEC [Concomitant]
     Indication: GASTROOESOPHAGEAL REFLUX DISEASE
     Route: 048
  12. ERYTHROMYCIN [Concomitant]
     Indication: LOWER RESPIRATORY TRACT INFECTION

REACTIONS (10)
  - Lower respiratory tract infection [Recovered/Resolved]
  - Atrial fibrillation [Not Recovered/Not Resolved]
  - Heart rate increased [Unknown]
  - Heart rate irregular [Unknown]
  - Cellulitis [Recovered/Resolved]
  - Rash [Recovered/Resolved]
  - Back pain [Recovered/Resolved]
  - Dyspnoea [Unknown]
  - Muscular weakness [Unknown]
  - Back pain [Recovered/Resolved]
